FAERS Safety Report 7771410-X (Version None)
Quarter: 2011Q3

REPORT INFORMATION
  Report Type: 
  Country: None (occurrence: None)
  Receive Date: 20110922
  Receipt Date: 20110418
  Transmission Date: 20111222
  Serious: No
  Sender: FDA-Public Use
  Company Number: US-ASTRAZENECA-2009SE09802

PATIENT
  Age: 28 Year
  Sex: Female
  Weight: 149.6 kg

DRUGS (12)
  1. VICODIN/HYDROCODONE/APAP [Concomitant]
     Indication: PAIN
     Dosage: 5/500 TAKE ONE TO TWO TABLETS EVERY FOUR TO SIX HOURS AS NEEDED
     Dates: start: 20030203
  2. FLEXERIL [Concomitant]
     Dates: start: 20070514
  3. FLUOXETINE [Concomitant]
     Dates: start: 20070514
  4. SEROQUEL [Suspect]
     Dosage: 25 MG-300 MG
     Route: 048
     Dates: start: 20030627
  5. ESTRADIOL [Concomitant]
     Dates: start: 20070514
  6. SEROQUEL [Suspect]
     Dosage: 25 MG-300 MG
     Route: 048
     Dates: start: 20030627
  7. LEXAPRO [Concomitant]
     Dates: start: 20030627
  8. CYMBALTA [Concomitant]
     Dates: start: 20080101
  9. SEROQUEL [Suspect]
     Indication: INSOMNIA
     Dosage: 25 MG-300 MG
     Route: 048
     Dates: start: 20020101
  10. METHADONE HCL [Concomitant]
     Dosage: 10 MG THREE TID
     Dates: start: 20070514
  11. SEROQUEL [Suspect]
     Indication: SLEEP DISORDER
     Dosage: 25 MG-300 MG
     Route: 048
     Dates: start: 20020101
  12. TRAZODONE HYDROCHLORIDE [Concomitant]
     Dates: start: 20080101

REACTIONS (3)
  - OVERWEIGHT [None]
  - TYPE 2 DIABETES MELLITUS [None]
  - OBESITY [None]
